FAERS Safety Report 14028045 (Version 1)
Quarter: 2017Q3

REPORT INFORMATION
  Report Type: Spontaneous
  Country: US (occurrence: None)
  Receive Date: 20170930
  Receipt Date: 20170930
  Transmission Date: 20171128
  Serious: No
  Sender: FDA-Public Use
  Company Number: None

PATIENT
  Age: 36 Year
  Sex: Female
  Weight: 111.3 kg

DRUGS (1)
  1. INTRON A [Suspect]
     Active Substance: INTERFERON ALFA-2B
     Dates: end: 20140911

REACTIONS (4)
  - Oropharyngeal pain [None]
  - Mucosal inflammation [None]
  - Glossodynia [None]
  - Therapy cessation [None]

NARRATIVE: CASE EVENT DATE: 20140905
